FAERS Safety Report 20006777 (Version 2)
Quarter: 2021Q4

REPORT INFORMATION
  Report Type: Spontaneous
  Country: US (occurrence: US)
  Receive Date: 20211028
  Receipt Date: 20211125
  Transmission Date: 20220303
  Serious: Yes (Hospitalization, Other)
  Sender: FDA-Public Use
  Company Number: US-ORG100016242-2021000553

PATIENT

DRUGS (16)
  1. EXPAREL [Suspect]
     Active Substance: BUPIVACAINE
     Dosage: 20 ML DILUTED IN 20 ML NORMAL SALINE, INTRAOPERATIVELY
     Route: 065
  2. EXPAREL [Suspect]
     Active Substance: BUPIVACAINE
     Dosage: 1:1 MIXTURE OF 0.25% BUPIVACAINE AND LIPOSOMAL BUPIVACAINE; POSTOP FOR REFRACTORY ACUTE PAIN
     Route: 065
  3. BUPIVACAINE [Suspect]
     Active Substance: BUPIVACAINE
     Dosage: 1:1 MIXTURE OF 0.25% BUPIVACAINE AND LIPOSOMAL BUPIVACAINE; POSTOP FOR REFRACTORY ACUTE PAIN
     Route: 065
  4. SALINE [Concomitant]
     Active Substance: SODIUM CHLORIDE
     Dosage: 266 MG LB (20 ML) OF EXPAREL DILUTED IN 20 ML NORMAL SALINE; INTRAOPERATIVELY
     Route: 065
  5. ACETAMINOPHEN [Concomitant]
     Active Substance: ACETAMINOPHEN
     Dosage: PREOPERATIVE; 2 H PRIOR TO OPERATION
     Route: 065
  6. ACETAMINOPHEN [Concomitant]
     Active Substance: ACETAMINOPHEN
     Dosage: POSTOP
     Route: 065
  7. GABAPENTIN [Concomitant]
     Active Substance: GABAPENTIN
     Dosage: PREOPERATIVE; 2 H PRIOR OPERATION
     Route: 065
  8. GABAPENTIN [Concomitant]
     Active Substance: GABAPENTIN
     Dosage: POSTOP
     Route: 065
  9. GABAPENTIN [Concomitant]
     Active Substance: GABAPENTIN
     Dosage: MAX. DOSE
     Route: 065
  10. FENTANYL [Concomitant]
     Active Substance: FENTANYL
     Dosage: NOT PROVIDED
     Route: 065
  11. DEXMEDETOMIDINE [Concomitant]
     Active Substance: DEXMEDETOMIDINE
     Dosage: NOT PROVIDED
     Route: 065
  12. OXYCODONE [Concomitant]
     Active Substance: OXYCODONE
     Route: 048
  13. TRAMADOL [Concomitant]
     Active Substance: TRAMADOL
     Route: 048
  14. METHOCARBAMOL [Concomitant]
     Active Substance: METHOCARBAMOL
     Dosage: INITIAL
     Route: 065
  15. METHOCARBAMOL [Concomitant]
     Active Substance: METHOCARBAMOL
     Dosage: MAX DOSE
     Route: 065
  16. KETOROLAC [Concomitant]
     Active Substance: KETOROLAC TROMETHAMINE
     Route: 042

REACTIONS (10)
  - Ileus [Unknown]
  - Hospitalisation [Unknown]
  - Endotracheal intubation [Unknown]
  - Surgical procedure repeated [Unknown]
  - Tracheostomy [Unknown]
  - Pneumonia [Unknown]
  - Atrial fibrillation [Unknown]
  - Delirium [Unknown]
  - Deep vein thrombosis [Unknown]
  - Off label use [Unknown]
